FAERS Safety Report 7339327-2 (Version None)
Quarter: 2011Q1

REPORT INFORMATION
  Report Type: 
  Country: None (occurrence: None)
  Receive Date: 20110308
  Receipt Date: 20110302
  Transmission Date: 20110831
  Serious: Yes (Other)
  Sender: FDA-Public Use
  Company Number: US-PFIZER INC-2011008335

PATIENT
  Sex: Male
  Weight: 102 kg

DRUGS (3)
  1. LISINOPRIL AND HYDROCHLOROTHIAZIDE [Concomitant]
     Indication: HYPERTENSION
     Dosage: 20MG/25 MG, UNK
  2. LIPITOR [Suspect]
     Indication: BLOOD CHOLESTEROL INCREASED
     Dosage: 40 MG, DAILY
     Route: 048
     Dates: start: 20040101
  3. ABILIFY [Suspect]
     Dosage: 10 MG, UNK

REACTIONS (10)
  - NEOPLASM MALIGNANT [None]
  - CARDIAC DISORDER [None]
  - CHEST PAIN [None]
  - DIARRHOEA [None]
  - PULMONARY FUNCTION TEST ABNORMAL [None]
  - EXERCISE LACK OF [None]
  - DRY MOUTH [None]
  - FEAR [None]
  - OVERWEIGHT [None]
  - DYSPNOEA [None]
